FAERS Safety Report 10380487 (Version 1)
Quarter: 2014Q3

REPORT INFORMATION
  Report Type: Spontaneous
  Country: CA (occurrence: CA)
  Receive Date: 20140813
  Receipt Date: 20140813
  Transmission Date: 20150326
  Serious: Yes (Death, Other)
  Sender: FDA-Public Use
  Company Number: CA-ACCORD-025287

PATIENT
  Age: 53 Year
  Sex: Male

DRUGS (2)
  1. CISPLATIN. [Suspect]
     Active Substance: CISPLATIN
     Indication: SMALL CELL LUNG CANCER
     Dosage: FOR DAY 1-3 FOR 3 MONTHLY CYCLE
     Route: 042
  2. ETOPOSIDE. [Suspect]
     Active Substance: ETOPOSIDE
     Indication: SMALL CELL LUNG CANCER
     Dosage: FOR DAY 1-3 FOR 3 MONTHLY CYCLE
     Route: 048

REACTIONS (4)
  - Multi-organ failure [Fatal]
  - Aortic thrombosis [Unknown]
  - Vomiting [Unknown]
  - Off label use [Unknown]
